FAERS Safety Report 4808714-6 (Version None)
Quarter: 2005Q4

REPORT INFORMATION
  Report Type: 
  Country: None (occurrence: None)
  Receive Date: 20051021
  Receipt Date: 20041007
  Transmission Date: 20060501
  Serious: No
  Sender: FDA-Public Use
  Company Number: DE_041014421

PATIENT
  Age: 23 Year
  Sex: Female

DRUGS (2)
  1. ZYPREXA [Suspect]
     Indication: PSYCHOTIC DISORDER
     Dosage: 5 MG DAY
     Route: 048
     Dates: start: 20040723, end: 20040101
  2. METHADONE [Concomitant]

REACTIONS (2)
  - RED BLOOD CELL ABNORMALITY [None]
  - WHITE BLOOD CELL DISORDER [None]
